FAERS Safety Report 7544723-4 (Version None)
Quarter: 2011Q2

REPORT INFORMATION
  Report Type: 
  Country: None (occurrence: None)
  Receive Date: 20110614
  Receipt Date: 20110607
  Transmission Date: 20111010
  Serious: No
  Sender: FDA-Public Use
  Company Number: US-BIOGENIDEC-2011BI021107

PATIENT
  Age: 43 Year
  Sex: Female

DRUGS (1)
  1. TYSABRI [Suspect]
     Indication: MULTIPLE SCLEROSIS
     Route: 042
     Dates: start: 20110310

REACTIONS (8)
  - STRESS [None]
  - POOR VENOUS ACCESS [None]
  - CONTUSION [None]
  - FATIGUE [None]
  - DEHYDRATION [None]
  - HYPOAESTHESIA [None]
  - ANXIETY [None]
  - HEADACHE [None]
